FAERS Safety Report 5742282-X (Version None)
Quarter: 2008Q2

REPORT INFORMATION
  Report Type: 
  Country: None (occurrence: None)
  Receive Date: 20080519
  Receipt Date: 20080513
  Transmission Date: 20081010
  Serious: Yes (Other)
  Sender: FDA-Public Use
  Company Number: PHHY2008ES07756

PATIENT
  Age: 74 Year
  Sex: Male

DRUGS (8)
  1. EXELON [Suspect]
     Indication: AMNESIA
     Dosage: 2 MG/ML, UNK
     Route: 048
  2. DIANBEN [Suspect]
     Dosage: 850 MG, UNK
  3. ADIRO [Suspect]
     Dosage: 100 MG, UNK
  4. CARDYL [Suspect]
     Dosage: 40 MG, UNK
  5. NEURONTIN [Suspect]
     Dosage: 400 MG, UNK
  6. HUMULIN N [Suspect]
  7. PANTOPRAZOLE SODIUM [Suspect]
     Dosage: 20 MG, UNK
  8. AXURA [Suspect]
     Dosage: 10 MG, UNK
     Dates: start: 20071201, end: 20080219

REACTIONS (7)
  - AMNESIA [None]
  - COORDINATION ABNORMAL [None]
  - DISORIENTATION [None]
  - DIZZINESS [None]
  - DRUG INTERACTION [None]
  - INSOMNIA [None]
  - SYNCOPE [None]
